FAERS Safety Report 5509890-2 (Version None)
Quarter: 2007Q4

REPORT INFORMATION
  Report Type: 
  Country: None (occurrence: None)
  Receive Date: 20071108
  Receipt Date: 20071031
  Transmission Date: 20080405
  Serious: Yes (Hospitalization)
  Sender: FDA-Public Use
  Company Number: JP-AVENTIS-200712960JP

PATIENT

DRUGS (1)
  1. TAXOTERE [Suspect]
     Route: 041

REACTIONS (1)
  - ADVERSE DRUG REACTION [None]
